FAERS Safety Report 13823083 (Version 2)
Quarter: 2017Q3

REPORT INFORMATION
  Report Type: Report from Study
  Country: None (occurrence: US)
  Receive Date: 20170801
  Receipt Date: 20170811
  Transmission Date: 20171127
  Serious: Yes (Other)
  Sender: FDA-Public Use
  Company Number: US-ABBVIE-17P-163-1910353-00

PATIENT
  Age: 33 Year
  Sex: Male

DRUGS (9)
  1. METHADONE [Concomitant]
     Active Substance: METHADONE HYDROCHLORIDE
     Indication: PRODUCT USED FOR UNKNOWN INDICATION
  2. TRAMADOL. [Concomitant]
     Active Substance: TRAMADOL
     Indication: PRODUCT USED FOR UNKNOWN INDICATION
  3. MODERIBA [Interacting]
     Active Substance: RIBAVIRIN
     Indication: HEPATITIS C
     Dosage: Q A.M.
     Route: 048
     Dates: start: 201701, end: 201701
  4. CALOTAPIN [Concomitant]
     Indication: PRODUCT USED FOR UNKNOWN INDICATION
  5. VIEKIRA PAK [Suspect]
     Active Substance: DASABUVIR\OMBITASVIR\PARITAPREVIR\RITONAVIR
     Indication: HEPATITIS C
     Route: 048
     Dates: start: 20170117, end: 20170126
  6. CLONIDINE. [Concomitant]
     Active Substance: CLONIDINE
     Indication: PRODUCT USED FOR UNKNOWN INDICATION
  7. CLONAZEPAM. [Concomitant]
     Active Substance: CLONAZEPAM
     Indication: PRODUCT USED FOR UNKNOWN INDICATION
  8. MODERIBA [Interacting]
     Active Substance: RIBAVIRIN
     Dosage: Q A.M.
     Route: 048
     Dates: start: 201701, end: 201701
  9. GABAPENTIN. [Concomitant]
     Active Substance: GABAPENTIN
     Indication: PRODUCT USED FOR UNKNOWN INDICATION

REACTIONS (8)
  - Hypopnoea [Recovered/Resolved]
  - Withdrawal syndrome [Recovered/Resolved]
  - Formication [Recovered/Resolved]
  - Dizziness [Recovered/Resolved]
  - Anxiety [Recovered/Resolved]
  - Vomiting [Recovered/Resolved]
  - Vomiting [Recovering/Resolving]
  - Panic attack [Recovered/Resolved]

NARRATIVE: CASE EVENT DATE: 201701
